FAERS Safety Report 25471085 (Version 1)
Quarter: 2025Q2

REPORT INFORMATION
  Report Type: Spontaneous
  Country: US (occurrence: US)
  Receive Date: 20250624
  Receipt Date: 20250624
  Transmission Date: 20250716
  Serious: Yes (Other)
  Sender: COOPERSURGICAL
  Company Number: US-COOPERSURGICAL, INC.-2025CPS005046

PATIENT
  Sex: Female
  Weight: 79.365 kg

DRUGS (1)
  1. PARAGARD T 380A [Suspect]
     Active Substance: COPPER
     Route: 015
     Dates: start: 20140128, end: 20210514

REACTIONS (12)
  - Reproductive complication associated with device [Not Recovered/Not Resolved]
  - Device breakage [Recovered/Resolved]
  - Foreign body in reproductive tract [Recovered/Resolved]
  - Complication of device removal [Recovered/Resolved]
  - Urinary tract infection [Recovered/Resolved]
  - Emotional disorder [Unknown]
  - Sexual dysfunction [Not Recovered/Not Resolved]
  - Cervical discharge [Recovered/Resolved]
  - Menstruation irregular [Recovered/Resolved]
  - Pain [Recovered/Resolved]
  - Abnormal uterine bleeding [Recovered/Resolved]
  - Menstrual disorder [Unknown]

NARRATIVE: CASE EVENT DATE: 20140101
